FAERS Safety Report 8976979 (Version 1)
Quarter: 2012Q4

REPORT INFORMATION
  Report Type: 
  Country: US (occurrence: US)
  Receive Date: 20121220
  Receipt Date: 20121220
  Transmission Date: 20130627
  Serious: Yes (Other)
  Sender: FDA-Public Use
  Company Number: US-BAYER-2012-132872

PATIENT
  Age: 28 Year
  Sex: Female
  Weight: 102 kg

DRUGS (8)
  1. YASMIN [Suspect]
     Indication: CONTRACEPTION
  2. OCELLA [Suspect]
  3. ZARAH [Suspect]
  4. METHYLPREDNISOLONE [Concomitant]
     Dosage: 4 mg, UNK
  5. PREDNISONE [Concomitant]
     Dosage: 20 mg, BID for 3 days
  6. AMOXICILLIN [Concomitant]
     Dosage: 500 mg, UNK
  7. HYDROCODONE W/ACETAMINOPHEN [Concomitant]
     Dosage: 5-500mg tablet
  8. MEDROL DOSEPAK [Concomitant]

REACTIONS (1)
  - Deep vein thrombosis [None]
